FAERS Safety Report 7153855-4 (Version None)
Quarter: 2010Q4

REPORT INFORMATION
  Report Type: 
  Country: None (occurrence: None)
  Receive Date: 20101213
  Receipt Date: 20101018
  Transmission Date: 20110411
  Serious: No
  Sender: FDA-Public Use
  Company Number: US-ABBOTT-10P-163-0679342-00

PATIENT
  Sex: Female

DRUGS (1)
  1. MERIDIA [Suspect]
     Indication: WEIGHT CONTROL
     Dates: start: 20080101, end: 20101019

REACTIONS (2)
  - CHEST PAIN [None]
  - DYSPNOEA [None]
